FAERS Safety Report 24529711 (Version 1)
Quarter: 2024Q4

REPORT INFORMATION
  Report Type: Spontaneous
  Country: US (occurrence: US)
  Receive Date: 20241021
  Receipt Date: 20241021
  Transmission Date: 20250115
  Serious: No
  Sender: BAYER HEALTHCARE LLC
  Company Number: US-BAYER-2024A149698

PATIENT
  Age: 16 Year
  Sex: Male

DRUGS (3)
  1. LORATADINE [Suspect]
     Active Substance: LORATADINE
  2. CETIRIZINE [Concomitant]
     Active Substance: CETIRIZINE HYDROCHLORIDE
  3. HYDROXYZINE [Concomitant]
     Active Substance: HYDROXYZINE HYDROCHLORIDE

REACTIONS (1)
  - Drug ineffective [None]
